FAERS Safety Report 5568181-4 (Version None)
Quarter: 2007Q4

REPORT INFORMATION
  Report Type: 
  Country: None (occurrence: None)
  Receive Date: 20071218
  Receipt Date: 20071218
  Transmission Date: 20080405
  Serious: No
  Sender: FDA-Public Use
  Company Number: None

PATIENT
  Age: 65 Year
  Sex: Male

DRUGS (1)
  1. VARENICILINE [Suspect]
     Indication: SMOKING CESSATION THERAPY
     Dosage: 0.5MG EVERY DAY PO
     Route: 048
     Dates: start: 20070920, end: 20071010

REACTIONS (4)
  - ABDOMINAL DISCOMFORT [None]
  - DIARRHOEA [None]
  - NAUSEA [None]
  - VOMITING [None]
